FAERS Safety Report 7396510-8 (Version None)
Quarter: 2011Q2

REPORT INFORMATION
  Report Type: 
  Country: None (occurrence: None)
  Receive Date: 20110406
  Receipt Date: 20110331
  Transmission Date: 20111010
  Serious: Yes (Other)
  Sender: FDA-Public Use
  Company Number: ES-BRISTOL-MYERS SQUIBB COMPANY-15628365

PATIENT
  Age: 6 Decade
  Sex: Female

DRUGS (4)
  1. AMITRIPTYLINE [Concomitant]
     Indication: TENSION HEADACHE
  2. MYCOSTATIN [Suspect]
     Indication: ORAL FUNGAL INFECTION
  3. MYCOSTATIN [Suspect]
     Indication: DRY MOUTH
  4. AMITRIPTYLINE [Concomitant]
     Indication: DRY MOUTH

REACTIONS (3)
  - ABDOMINAL PAIN UPPER [None]
  - ORAL PAIN [None]
  - OESOPHAGITIS [None]
